FAERS Safety Report 19048352 (Version 1)
Quarter: 2021Q1

REPORT INFORMATION
  Report Type: Spontaneous
  Country: NO (occurrence: NO)
  Receive Date: 20210323
  Receipt Date: 20210323
  Transmission Date: 20210420
  Serious: Yes (Hospitalization, Disabling, Other)
  Sender: FDA-Public Use
  Company Number: NO-ELI_LILLY_AND_COMPANY-NO202103005611

PATIENT
  Sex: Female
  Weight: 79.5 kg

DRUGS (21)
  1. ZOPIKLON MYLAN [Concomitant]
     Active Substance: ZOPICLONE
     Indication: INSOMNIA
     Dosage: 7.5 MG IN THE EVENING
     Route: 048
  2. ZESTRIL [Concomitant]
     Active Substance: LISINOPRIL
     Indication: HYPERTENSION
     Route: 048
  3. MUCOMYST [Concomitant]
     Active Substance: ACETYLCYSTEINE
     Indication: PRODUCT USED FOR UNKNOWN INDICATION
     Dosage: 200 MG WHEN NEEDED UP TO X 3
     Route: 048
  4. EZETROL [Concomitant]
     Active Substance: EZETIMIBE
     Indication: BLOOD CHOLESTEROL INCREASED
     Route: 048
  5. ALBYL?E [Concomitant]
     Active Substance: ASPIRIN\MAGNESIUM OXIDE
     Indication: PRODUCT USED FOR UNKNOWN INDICATION
     Route: 048
     Dates: start: 20200831
  6. CARBOPLATIN. [Suspect]
     Active Substance: CARBOPLATIN
     Indication: NON-SMALL CELL LUNG CANCER METASTATIC
     Dosage: AUC 5 = 610 MG TWO CYCLES
     Route: 042
     Dates: end: 202008
  7. LAXOBERAL [Concomitant]
     Active Substance: SODIUM PICOSULFATE
     Indication: CONSTIPATION
     Dosage: 5?15 DROPS WHEN NEEDED WHEN DUPHALAC ISNT ENOUGH
     Route: 048
  8. ATORVASTATIN MYLAN [Concomitant]
     Active Substance: ATORVASTATIN
     Indication: BLOOD CHOLESTEROL INCREASED
     Route: 048
  9. DEXAMETASON ABCUR [Concomitant]
     Indication: PREMEDICATION
     Dosage: 4 MG X 2 THE DAY BEFORE CHEMOTHERAPY, THE FOLLOWING DAY AND THE DAY AFTER CHEMO
     Route: 048
  10. KEYTRUDA [Concomitant]
     Active Substance: PEMBROLIZUMAB
     Indication: NON-SMALL CELL LUNG CANCER METASTATIC
     Dosage: TWO CYCLES
     Route: 042
     Dates: end: 202008
  11. ATOZET [Concomitant]
     Active Substance: ATORVASTATIN CALCIUM\EZETIMIBE
     Indication: BLOOD CHOLESTEROL INCREASED
     Route: 048
  12. ONDANSETRON BLUEFISH [ONDANSETRON] [Concomitant]
     Indication: NAUSEA
     Dosage: 8 MG X 2 DURING THE CHEMO AND THEREAFTER 1?2 TIMES PER DAY IF NEEDED
     Route: 048
  13. FOLSYRE NAF [Concomitant]
     Active Substance: FOLIC ACID
     Indication: VITAMIN SUPPLEMENTATION
     Dosage: 1 MG X 1 UNTIL 3 WEEKS AFTER THE LAST CYCLE
     Route: 048
  14. FURIX [FUROSEMIDE] [Concomitant]
     Active Substance: FUROSEMIDE
     Indication: DIURETIC THERAPY
     Dosage: 20 MG SOMETIMES AS INSTRUCTED BY THE DR
     Route: 048
  15. AKYNZEO [Concomitant]
     Active Substance: NETUPITANT\PALONOSETRON HYDROCHLORIDE
     Indication: NAUSEA
     Dosage: 1 CAPSULE 1 HOUR BEFORE CHEMO
     Route: 048
     Dates: start: 202008
  16. ALIMTA [Suspect]
     Active Substance: PEMETREXED DISODIUM
     Indication: NON-SMALL CELL LUNG CANCER METASTATIC
     Dosage: 500 MG/M2 = 900 MG TWO CYCLES
     Route: 015
     Dates: end: 202008
  17. KODEIN [Concomitant]
     Active Substance: CODEINE PHOSPHATE
     Indication: COUGH
     Dosage: 25 MG EVENING WHEN NEEDED
     Route: 048
  18. GLIMEPIRID HEXAL [Concomitant]
     Indication: TYPE 2 DIABETES MELLITUS
     Dosage: 2 TABLETS A 2 MG IN THE MORNING (DOSE INCRESED)
     Route: 048
  19. AFIPRAN [Concomitant]
     Active Substance: METOCLOPRAMIDE HYDROCHLORIDE
     Indication: NAUSEA
     Dosage: 10 MG UP TO X 3
     Route: 048
  20. CYKLOKAPRON [Concomitant]
     Active Substance: TRANEXAMIC ACID
     Indication: HAEMORRHAGE PROPHYLAXIS
     Dosage: 500 MG UP TO X 3
     Route: 048
  21. DUPHALAC [Concomitant]
     Active Substance: LACTULOSE
     Indication: CONSTIPATION
     Dosage: 10 TO 15 ML WHEN NEEDED, MAX X 3
     Route: 048

REACTIONS (11)
  - Peripheral ischaemia [Unknown]
  - Incorrect route of product administration [Unknown]
  - Necrosis [Recovered/Resolved with Sequelae]
  - Decubitus ulcer [Unknown]
  - Off label use [Unknown]
  - Diarrhoea [Unknown]
  - Nausea [Unknown]
  - Arteriosclerosis [Recovered/Resolved with Sequelae]
  - Fatigue [Unknown]
  - Infection [Unknown]
  - Febrile neutropenia [Recovered/Resolved]

NARRATIVE: CASE EVENT DATE: 20200729
